FAERS Safety Report 8306507-9 (Version None)
Quarter: 2012Q2

REPORT INFORMATION
  Report Type: 
  Country: None (occurrence: None)
  Receive Date: 20120424
  Receipt Date: 20120411
  Transmission Date: 20120825
  Serious: No
  Sender: FDA-Public Use
  Company Number: US-BIOGENIDEC-2012BI012663

PATIENT
  Age: 49 Year
  Sex: Female

DRUGS (1)
  1. AVONEX [Suspect]
     Indication: MULTIPLE SCLEROSIS
     Route: 030
     Dates: start: 20120307

REACTIONS (7)
  - TREMOR [None]
  - WHEEZING [None]
  - FEELING COLD [None]
  - USE OF ACCESSORY RESPIRATORY MUSCLES [None]
  - CHILLS [None]
  - CHEST DISCOMFORT [None]
  - CRYING [None]
